FAERS Safety Report 14075987 (Version 1)
Quarter: 2017Q4

REPORT INFORMATION
  Report Type: Other
  Country: None (occurrence: US)
  Receive Date: 20171011
  Receipt Date: 20171011
  Transmission Date: 20180321
  Serious: Yes (Other)
  Sender: FDA-Public Use
  Company Number: US-GUTHY-RENKER, LLC-2029647

PATIENT
  Age: 53 Year
  Sex: Female

DRUGS (2)
  1. MEANINGFUL BEAUTY CINDY CRAWFORD ANTIOXIDANT SPF 20 UVA/UVB [Suspect]
     Active Substance: AVOBENZONE\OCTINOXATE\OCTISALATE\OXYBENZONE
     Indication: PROPHYLAXIS AGAINST SOLAR RADIATION
     Route: 061
     Dates: start: 20170915, end: 20170929
  2. WOMEN^S VITAMIN [Concomitant]

REACTIONS (5)
  - Burning sensation [None]
  - Swelling [None]
  - Erythema [None]
  - Swelling face [Recovering/Resolving]
  - Pruritus [None]

NARRATIVE: CASE EVENT DATE: 20170929
